FAERS Safety Report 8352723 (Version 2)
Quarter: 2012Q4

REPORT INFORMATION
  Report Type: 
  Country: US (occurrence: US)
  Receive Date: 20120124
  Receipt Date: 20120927
  Transmission Date: 20130627
  Serious: No
  Sender: FDA-Public Use
  Company Number: US-AMGEN-USASP2011057105

PATIENT
  Age: 72 Year
  Sex: Female
  Weight: 64.4 kg

DRUGS (4)
  1. PROLIA [Suspect]
     Indication: OSTEOPOROSIS POSTMENOPAUSAL
     Dosage: 60 mg, q6mo
     Route: 058
     Dates: start: 20110629
  2. LISINOPRIL/HYDROCHLOROTHIAZIDE [Concomitant]
  3. VITAMINS                           /00067501/ [Concomitant]
  4. AMLODIPINE [Concomitant]

REACTIONS (1)
  - Herpes zoster [Recovered/Resolved]
